FAERS Safety Report 4479392-3 (Version None)
Quarter: 2004Q4

REPORT INFORMATION
  Report Type: 
  Country: None (occurrence: None)
  Receive Date: 20041015
  Receipt Date: 20040927
  Transmission Date: 20050328
  Serious: Yes (Death)
  Sender: FDA-Public Use
  Company Number: 2004236014US

PATIENT
  Age: 62 Year
  Sex: 0

DRUGS (3)
  1. XANAX [Suspect]
     Dosage: UNK
     Route: 065
  2. OPIOIDS ( ) [Suspect]
     Dosage: UNK
     Route: 065
  3. AMITRIPTYLINE HCL [Suspect]
     Dosage: UNK
     Route: 065

REACTIONS (1)
  - MULTIPLE DRUG OVERDOSE INTENTIONAL [None]
